FAERS Safety Report 12552860 (Version 1)
Quarter: 2016Q3

REPORT INFORMATION
  Report Type: Spontaneous
  Country: JP (occurrence: JP)
  Receive Date: 20160713
  Receipt Date: 20160713
  Transmission Date: 20161109
  Serious: Yes (Death, Other)
  Sender: FDA-Public Use
  Company Number: PHHY2016JP094500

PATIENT
  Age: 69 Year
  Sex: Female

DRUGS (3)
  1. MITOTANE [Concomitant]
     Active Substance: MITOTANE
     Indication: CUSHING^S SYNDROME
     Dosage: 3 G, QD
     Route: 065
  2. IRINOTECAN [Suspect]
     Active Substance: IRINOTECAN
     Indication: NEUROENDOCRINE CARCINOMA METASTATIC
     Dosage: 60 MG/M2, CYCLIC
     Route: 065
  3. CISPLATIN. [Suspect]
     Active Substance: CISPLATIN
     Indication: NEUROENDOCRINE CARCINOMA METASTATIC
     Dosage: 60 MG/M2, CYCLIC
     Route: 065

REACTIONS (5)
  - Hepatic failure [Fatal]
  - Drug ineffective [Fatal]
  - Disease recurrence [Unknown]
  - Haematotoxicity [Unknown]
  - Drug effect incomplete [Unknown]
